FAERS Safety Report 9606150 (Version 2)
Quarter: 2013Q4

REPORT INFORMATION
  Report Type: Spontaneous
  Country: US (occurrence: US)
  Receive Date: 20131008
  Receipt Date: 20131021
  Transmission Date: 20140711
  Serious: Yes (Death, Other)
  Sender: FDA-Public Use
  Company Number: US-GILEAD-2013-0084892

PATIENT
  Age: 95 Year
  Sex: Female

DRUGS (2)
  1. CAYSTON [Suspect]
     Indication: INFECTIVE EXACERBATION OF BRONCHIECTASIS
     Dosage: 75 MG, UNK
     Route: 055
     Dates: start: 20120120, end: 20130731
  2. CAYSTON [Suspect]
     Indication: BACTERIAL INFECTION

REACTIONS (2)
  - Elderly [Fatal]
  - Failure to thrive [Fatal]
